FAERS Safety Report 16818196 (Version 2)
Quarter: 2019Q3

REPORT INFORMATION
  Report Type: Spontaneous
  Country: US (occurrence: US)
  Receive Date: 20190917
  Receipt Date: 20190926
  Transmission Date: 20191005
  Serious: No
  Sender: FDA-Public Use
  Company Number: US-AMGEN-USASP2019151030

PATIENT
  Sex: Female

DRUGS (5)
  1. VENLAFAXINE [Concomitant]
     Active Substance: VENLAFAXINE HYDROCHLORIDE
     Dosage: 75 MILLIGRAM
  2. VITAMIN D [ERGOCALCIFEROL] [Concomitant]
     Active Substance: ERGOCALCIFEROL
     Dosage: 2000 INTERNATIONAL UNIT
  3. ENBREL [Suspect]
     Active Substance: ETANERCEPT
     Indication: PSORIATIC ARTHROPATHY
     Dosage: 25 MILLIGRAM, 2 TIMES/WK
     Route: 058
  4. CETAPHIL [CETYL ALCOHOL;PROPYLENE GLYCOL;SODIUM LAURYL SULFATE;STEARYL [Concomitant]
     Dosage: UNK
  5. DICLOFENAC POTASSIUM. [Concomitant]
     Active Substance: DICLOFENAC POTASSIUM
     Dosage: 50 MILLIGRAM

REACTIONS (1)
  - Drug ineffective [Unknown]
